FAERS Safety Report 5953806-1 (Version None)
Quarter: 2008Q4

REPORT INFORMATION
  Report Type: 
  Country: None (occurrence: None)
  Receive Date: 20081114
  Receipt Date: 20081104
  Transmission Date: 20090506
  Serious: Yes (Other)
  Sender: FDA-Public Use
  Company Number: US-PFIZER INC-2008081728

PATIENT
  Sex: Female
  Weight: 56.7 kg

DRUGS (3)
  1. LIPITOR [Suspect]
     Indication: BLOOD CHOLESTEROL INCREASED
     Route: 048
     Dates: start: 20080201, end: 20080925
  2. NIFEDIPINE [Concomitant]
     Dates: start: 20080201
  3. METOPROLOL TARTRATE [Concomitant]
     Dates: start: 20080201

REACTIONS (3)
  - ABASIA [None]
  - MUSCULOSKELETAL PAIN [None]
  - MYALGIA [None]
